FAERS Safety Report 7740156-6 (Version None)
Quarter: 2011Q3

REPORT INFORMATION
  Report Type: 
  Country: None (occurrence: None)
  Receive Date: 20110909
  Receipt Date: 20110825
  Transmission Date: 20111222
  Serious: Yes (Hospitalization, Other)
  Sender: FDA-Public Use
  Company Number: DE-JNJFOC-20110309951

PATIENT
  Sex: Female
  Weight: 94 kg

DRUGS (4)
  1. TOLPERISONE [Concomitant]
     Route: 065
     Dates: start: 20101013, end: 20110122
  2. LYRICA [Interacting]
     Indication: PRODUCT USED FOR UNKNOWN INDICATION
     Route: 048
     Dates: start: 20101003
  3. PALEXIA RETARD [Suspect]
     Indication: PRODUCT USED FOR UNKNOWN INDICATION
     Route: 048
     Dates: start: 20110107, end: 20110122
  4. VENLAFAXINE HYDROCHLORIDE [Interacting]
     Indication: PRODUCT USED FOR UNKNOWN INDICATION
     Route: 048
     Dates: start: 20100415, end: 20110122

REACTIONS (6)
  - DEPRESSED LEVEL OF CONSCIOUSNESS [None]
  - CONFUSIONAL STATE [None]
  - URINARY RETENTION [None]
  - SEROTONIN SYNDROME [None]
  - HALLUCINATION [None]
  - DRUG INTERACTION [None]
